FAERS Safety Report 6750154-7 (Version None)
Quarter: 2010Q2

REPORT INFORMATION
  Report Type: 
  Country: None (occurrence: None)
  Receive Date: 20100527
  Receipt Date: 20100527
  Transmission Date: 20101027
  Serious: Yes (Hospitalization, Other)
  Sender: FDA-Public Use
  Company Number: None

PATIENT
  Age: 94 Year
  Sex: Female
  Weight: 45.3597 kg

DRUGS (1)
  1. COMBIGAN [Suspect]
     Indication: GLAUCOMA
     Dosage: 1 DROP IN EACH EYE TWICE A DAY INTRAOCULAR
     Route: 031
     Dates: start: 20100301, end: 20100525

REACTIONS (3)
  - BLOOD PRESSURE INCREASED [None]
  - DELUSION [None]
  - HALLUCINATION [None]
